FAERS Safety Report 5524301-9 (Version None)
Quarter: 2007Q4

REPORT INFORMATION
  Report Type: 
  Country: None (occurrence: None)
  Receive Date: 20071121
  Receipt Date: 20071109
  Transmission Date: 20080405
  Serious: Yes (Other)
  Sender: FDA-Public Use
  Company Number: CA-PFIZER INC-2007095415

PATIENT
  Age: 45 Year
  Sex: Male

DRUGS (1)
  1. CAVERJECT [Suspect]

REACTIONS (2)
  - DRUG INEFFECTIVE [None]
  - INJECTION SITE PAIN [None]
